FAERS Safety Report 8501629-1 (Version None)
Quarter: 2012Q3

REPORT INFORMATION
  Report Type: 
  Country: None (occurrence: None)
  Receive Date: 20120711
  Receipt Date: 20120705
  Transmission Date: 20120928
  Serious: Yes (Hospitalization)
  Sender: FDA-Public Use
  Company Number: NL-AMGEN-NLDSP2012041685

PATIENT
  Age: 58 Year
  Sex: Male
  Weight: 97 kg

DRUGS (2)
  1. NEULASTA [Suspect]
     Indication: CHEMOTHERAPY
     Dosage: 6 MG/ML, UNK
     Dates: start: 20111013, end: 20111230
  2. OXYCONTIN [Concomitant]
     Dosage: 40 MG, Q12H
     Dates: start: 20111013

REACTIONS (3)
  - BONE PAIN [None]
  - MUSCLE SPASMS [None]
  - DISTURBANCE IN ATTENTION [None]
